FAERS Safety Report 6128877-2 (Version None)
Quarter: 2009Q1

REPORT INFORMATION
  Report Type: 
  Country: None (occurrence: None)
  Receive Date: 20090320
  Receipt Date: 20090306
  Transmission Date: 20090719
  Serious: Yes (Other)
  Sender: FDA-Public Use
  Company Number: 2009S1002238

PATIENT
  Sex: Male

DRUGS (3)
  1. PHENYTOIN SODIUM [Suspect]
     Indication: CONVULSION
     Dosage: 400 MG;DAILY;ORAL; 300 MG;DAILY;ORAL
     Route: 048
  2. PHENYTOIN SODIUM [Suspect]
     Indication: EPILEPSY
     Dosage: 400 MG;DAILY;ORAL; 300 MG;DAILY;ORAL
     Route: 048
  3. ASPIRIN [Concomitant]

REACTIONS (16)
  - DIZZINESS [None]
  - DRUG LEVEL DECREASED [None]
  - DRUG LEVEL INCREASED [None]
  - DYSKINESIA [None]
  - FALL [None]
  - FEELING ABNORMAL [None]
  - FEELING HOT [None]
  - GAIT DISTURBANCE [None]
  - GRAND MAL CONVULSION [None]
  - HAEMATEMESIS [None]
  - HYPERHIDROSIS [None]
  - MUSCLE TWITCHING [None]
  - PARTIAL SEIZURES [None]
  - PRODUCT QUALITY ISSUE [None]
  - TREMOR [None]
  - UNEVALUABLE EVENT [None]
